FAERS Safety Report 18831507 (Version 1)
Quarter: 2021Q1

REPORT INFORMATION
  Report Type: Spontaneous
  Country: US (occurrence: US)
  Receive Date: 20210203
  Receipt Date: 20210203
  Transmission Date: 20210419
  Serious: Yes (Death, Hospitalization, Other)
  Sender: FDA-Public Use
  Company Number: US-BAYER-2021-033420

PATIENT
  Age: 65 Year
  Sex: Female

DRUGS (10)
  1. COLCHICINE. [Concomitant]
     Active Substance: COLCHICINE
  2. POTASSIUM CHLORIDE. [Concomitant]
     Active Substance: POTASSIUM CHLORIDE
  3. SPIRONOLACTONE. [Concomitant]
     Active Substance: SPIRONOLACTONE
  4. WARFARIN [Concomitant]
     Active Substance: WARFARIN
  5. METOPROLOL. [Concomitant]
     Active Substance: METOPROLOL
  6. OPSUMIT [Suspect]
     Active Substance: MACITENTAN
     Indication: PULMONARY HYPERTENSION
     Dosage: UNK
  7. ALLOPURINOL. [Concomitant]
     Active Substance: ALLOPURINOL
  8. TORSEMIDE. [Concomitant]
     Active Substance: TORSEMIDE
  9. ADEMPAS [Suspect]
     Active Substance: RIOCIGUAT
     Indication: PULMONARY ARTERIAL HYPERTENSION
     Dosage: 1 MG, TID
     Dates: start: 20200115, end: 202012
  10. VENTOLIN HFA [Concomitant]
     Active Substance: ALBUTEROL SULFATE

REACTIONS (14)
  - Abdominal distension [None]
  - Haematemesis [None]
  - Diabetic ketoacidosis [None]
  - Hypotension [None]
  - Septic shock [Fatal]
  - Ageusia [None]
  - Fatigue [Not Recovered/Not Resolved]
  - Acute kidney injury [None]
  - Atrial fibrillation [None]
  - Ileus [None]
  - Vomiting [None]
  - Nausea [None]
  - Blood gases abnormal [None]
  - Aspiration [None]

NARRATIVE: CASE EVENT DATE: 20201205
